FAERS Safety Report 6680715-5 (Version None)
Quarter: 2010Q2

REPORT INFORMATION
  Report Type: 
  Country: None (occurrence: None)
  Receive Date: 20100413
  Receipt Date: 20100413
  Transmission Date: 20101027
  Serious: Yes (Hospitalization)
  Sender: FDA-Public Use
  Company Number: None

PATIENT
  Sex: Male
  Weight: 70.7611 kg

DRUGS (7)
  1. NORDITROPIN [Suspect]
  2. VERAPAMIL EXTENDED-RELEASE [Concomitant]
  3. VYTORIN [Concomitant]
  4. VITAMIN D [Concomitant]
  5. MILK [Concomitant]
  6. CIALIS [Concomitant]
  7. OS-CAL [Concomitant]

REACTIONS (1)
  - CHEST PAIN [None]
